FAERS Safety Report 14098545 (Version 1)
Quarter: 2017Q4

REPORT INFORMATION
  Report Type: Spontaneous
  Country: US (occurrence: US)
  Receive Date: 20171017
  Receipt Date: 20171017
  Transmission Date: 20180321
  Serious: Yes (Other)
  Sender: FDA-Public Use
  Company Number: None

PATIENT
  Age: 12 Week
  Sex: Male
  Weight: 107.6 kg

DRUGS (13)
  1. PHENYLEPHRINE [Suspect]
     Active Substance: PHENYLEPHRINE\PHENYLEPHRINE HYDROCHLORIDE
     Indication: HYPOTENSION
     Dosage: 100 UG MICROGRAM(S) AS NEEDED  INTRAVENOUS BOLUS
     Route: 040
  2. LACTATED RINGERS SOLUTION [Concomitant]
     Active Substance: CALCIUM CHLORIDE\POTASSIUM CHLORIDE\SODIUM CHLORIDE\SODIUM LACTATE
  3. HEPARIN [Concomitant]
     Active Substance: HEPARIN SODIUM
  4. HYDROMORPHONE [Concomitant]
     Active Substance: HYDROMORPHONE
  5. CALCIUM CHLORIDE. [Concomitant]
     Active Substance: CALCIUM CHLORIDE
  6. HYDROCORTISONE. [Concomitant]
     Active Substance: HYDROCORTISONE
  7. PROPOFOL. [Concomitant]
     Active Substance: PROPOFOL
  8. LIDOCAINE. [Concomitant]
     Active Substance: LIDOCAINE
  9. ONDANSETRON [Concomitant]
     Active Substance: ONDANSETRON
  10. NOREPINEPHRINE. [Concomitant]
     Active Substance: NOREPINEPHRINE
  11. ROCURONIUM [Concomitant]
     Active Substance: ROCURONIUM BROMIDE
  12. FENTANYL. [Concomitant]
     Active Substance: FENTANYL
  13. GLYCOPYRROLATE. [Concomitant]
     Active Substance: GLYCOPYRROLATE

REACTIONS (2)
  - Hypotension [None]
  - Therapy non-responder [None]

NARRATIVE: CASE EVENT DATE: 20171010
